FAERS Safety Report 4272823-3 (Version None)
Quarter: 2004Q1

REPORT INFORMATION
  Report Type: 
  Country: None (occurrence: None)
  Receive Date: 20040114
  Receipt Date: 20040109
  Transmission Date: 20041129
  Serious: Yes (Other)
  Sender: FDA-Public Use
  Company Number: 2004193549US

PATIENT

DRUGS (1)
  1. INSPRA [Suspect]
     Dosage: ORAL
     Route: 048

REACTIONS (1)
  - WEIGHT INCREASED [None]
